FAERS Safety Report 7538572-0 (Version None)
Quarter: 2011Q2

REPORT INFORMATION
  Report Type: 
  Country: None (occurrence: None)
  Receive Date: 20110610
  Receipt Date: 20110602
  Transmission Date: 20111010
  Serious: No
  Sender: FDA-Public Use
  Company Number: US-BIOGENIDEC-2010BI034655

PATIENT
  Age: 44 Year
  Sex: Female

DRUGS (3)
  1. TYSABRI [Suspect]
     Indication: MULTIPLE SCLEROSIS
     Route: 042
     Dates: start: 20071109, end: 20071206
  2. TYSABRI [Suspect]
     Route: 042
     Dates: start: 20100407, end: 20100702
  3. TYSABRI [Suspect]
     Route: 042
     Dates: start: 20110317

REACTIONS (6)
  - SCIATICA [None]
  - PAIN IN EXTREMITY [None]
  - INTERVERTEBRAL DISC PROTRUSION [None]
  - GAIT DISTURBANCE [None]
  - SPINAL OPERATION [None]
  - HYPOAESTHESIA [None]
